FAERS Safety Report 7258351-1 (Version None)
Quarter: 2011Q1

REPORT INFORMATION
  Report Type: 
  Country: None (occurrence: None)
  Receive Date: 20110129
  Receipt Date: 20100715
  Transmission Date: 20110831
  Serious: No
  Sender: FDA-Public Use
  Company Number: US-ABBOTT-10P-163-0658039-00

PATIENT
  Age: 50 Year
  Sex: Female

DRUGS (8)
  1. HUMIRA [Suspect]
     Indication: RHEUMATOID ARTHRITIS
     Route: 058
     Dates: start: 20100628, end: 20100705
  2. WELLBUTRIN [Concomitant]
     Indication: DEPRESSION
     Dosage: 300MG DAILY
  3. INDOCIN [Concomitant]
     Indication: PRODUCT USED FOR UNKNOWN INDICATION
  4. SYCLOBENZAPRINA [Concomitant]
     Indication: INSOMNIA
  5. FEXOFENADINE HCL [Concomitant]
     Indication: HYPERSENSITIVITY
     Dosage: 180MG DAILY
  6. LEVOTHYROXINE SODIUM [Concomitant]
     Indication: HYPOTHYROIDISM
     Dosage: 100MG DAILY
  7. HYDROCODEINE [Concomitant]
     Indication: PAIN
     Dosage: 5-500MG AS NEEDED
  8. SULFASALAZINE [Concomitant]
     Indication: RHEUMATOID ARTHRITIS

REACTIONS (4)
  - SKIN MASS [None]
  - PLATELET COUNT DECREASED [None]
  - FATIGUE [None]
  - INCREASED TENDENCY TO BRUISE [None]
